FAERS Safety Report 9537812 (Version 3)
Quarter: 2013Q3

REPORT INFORMATION
  Report Type: Report from Study
  Country: MX (occurrence: MX)
  Receive Date: 20130919
  Receipt Date: 20130923
  Transmission Date: 20140515
  Serious: Yes (Other)
  Sender: FDA-Public Use
  Company Number: PHHY2013MX023628

PATIENT
  Age: 53 Year
  Sex: Female
  Weight: 83 kg

DRUGS (5)
  1. GALVUS MET [Suspect]
     Indication: DIABETES MELLITUS
     Dosage: 2 DF (1000MG MET, 50MG VILDA), DAILY
     Route: 048
     Dates: start: 201206, end: 201307
  2. DIOVAN [Suspect]
     Indication: HYPERTENSION
     Dosage: 1 DF (80MG), DAILY
     Route: 048
     Dates: start: 2008
  3. AMARYL [Concomitant]
     Indication: DIABETES MELLITUS
     Dosage: 1 UKN, DAILY
     Route: 048
     Dates: start: 201206
  4. OMEGA-3 FATTY ACIDS [Concomitant]
     Indication: BODY FAT DISORDER
     Dosage: 3 UKN, DAILY
     Route: 048
     Dates: start: 201201
  5. BIOTONE [Concomitant]
     Indication: SUPPLEMENTATION THERAPY
     Dosage: 3 UKN, AT NIGHT
     Route: 048
     Dates: start: 201201

REACTIONS (14)
  - Blood glucose increased [Recovering/Resolving]
  - Fatigue [Recovered/Resolved]
  - Vision blurred [Recovered/Resolved]
  - Hyperphagia [Recovered/Resolved]
  - Polyuria [Recovered/Resolved]
  - Polydipsia [Recovered/Resolved]
  - Hypoaesthesia [Recovered/Resolved]
  - Dry mouth [Recovered/Resolved]
  - Dry skin [Recovered/Resolved]
  - Weight increased [Recovered/Resolved]
  - Weight decreased [Recovered/Resolved]
  - Urinary tract infection [Recovered/Resolved]
  - Reflux gastritis [Not Recovered/Not Resolved]
  - Helicobacter infection [Not Recovered/Not Resolved]
